FAERS Safety Report 16289855 (Version 1)
Quarter: 2019Q2

REPORT INFORMATION
  Report Type: Report from Study
  Country: US (occurrence: US)
  Receive Date: 20190509
  Receipt Date: 20190509
  Transmission Date: 20190711
  Serious: Yes (Other)
  Sender: FDA-Public Use
  Company Number: US-GILEAD-2019-0406000

PATIENT
  Age: 56 Year
  Sex: Female

DRUGS (1)
  1. AMBRISENTAN [Suspect]
     Active Substance: AMBRISENTAN
     Indication: PULMONARY HYPERTENSION
     Dosage: 10 MG, QD
     Route: 065
     Dates: start: 20081016

REACTIONS (4)
  - Peripheral coldness [Unknown]
  - Product dose omission [Recovered/Resolved]
  - Dyspnoea [Recovered/Resolved]
  - Oxygen saturation decreased [Recovered/Resolved]

NARRATIVE: CASE EVENT DATE: 20190501
